FAERS Safety Report 11852914 (Version 3)
Quarter: 2016Q1

REPORT INFORMATION
  Report Type: Spontaneous
  Country: DE (occurrence: DE)
  Receive Date: 20151218
  Receipt Date: 20160203
  Transmission Date: 20160526
  Serious: Yes (Death, Life-Threatening)
  Sender: FDA-Public Use
  Company Number: DE-JNJFOC-20151213983

PATIENT
  Age: 82 Year
  Sex: Female

DRUGS (3)
  1. RIVAROXABAN [Suspect]
     Active Substance: RIVAROXABAN
     Indication: ATRIAL FIBRILLATION
     Route: 048
     Dates: start: 20150726, end: 20150729
  2. RIVAROXABAN [Suspect]
     Active Substance: RIVAROXABAN
     Indication: CEREBROVASCULAR ACCIDENT PROPHYLAXIS
     Route: 048
     Dates: start: 20150726, end: 20150729
  3. PHENPROCOUMON [Concomitant]
     Active Substance: PHENPROCOUMON
     Route: 065
     Dates: end: 20150726

REACTIONS (6)
  - Encephalopathy [Fatal]
  - Infection [Fatal]
  - Cerebral haemorrhage [Fatal]
  - Pneumonia aspiration [Fatal]
  - Dysphagia [Fatal]
  - Status epilepticus [Fatal]

NARRATIVE: CASE EVENT DATE: 20150729
